FAERS Safety Report 8978753 (Version 1)
Quarter: 2012Q4

REPORT INFORMATION
  Report Type: 
  Country: DE (occurrence: IT)
  Receive Date: 20121221
  Receipt Date: 20121221
  Transmission Date: 20130627
  Serious: Yes (Other)
  Sender: FDA-Public Use
  Company Number: DE-RANBAXY-2012R1-63451

PATIENT
  Age: 21 Year
  Sex: Female

DRUGS (3)
  1. FLUOXETINE [Suspect]
     Indication: TOURETTE^S DISORDER
     Dosage: 20 mg, daily
     Route: 065
  2. ARIPIPRAZOLE [Interacting]
     Indication: TOURETTE^S DISORDER
     Dosage: 7.5 mg,daily
     Route: 065
  3. ARIPIPRAZOLE [Interacting]
     Indication: TOURETTE^S DISORDER
     Dosage: 2.5 mg,daily
     Route: 065

REACTIONS (2)
  - Oculogyric crisis [Recovered/Resolved]
  - Drug interaction [Recovered/Resolved]
